FAERS Safety Report 21646766 (Version 1)
Quarter: 2022Q4

REPORT INFORMATION
  Report Type: Spontaneous
  Country: NL (occurrence: NL)
  Receive Date: 20221127
  Receipt Date: 20221127
  Transmission Date: 20230112
  Serious: Yes (Other)
  Sender: FDA-Public Use
  Company Number: None

PATIENT
  Sex: Female
  Weight: 64 kg

DRUGS (1)
  1. DORZOLAMIDE [Suspect]
     Active Substance: DORZOLAMIDE
     Indication: Glaucoma
     Dosage: 2 GTT DAILY; 2X 1 DROP PER DAY, DORZOLAMIDE 20MG/ML / BRAND NAME NOT SPECIFIED, THERAPY END DATE : A
     Dates: start: 20220725

REACTIONS (1)
  - Retinal vein thrombosis [Not Recovered/Not Resolved]
